FAERS Safety Report 24614130 (Version 1)
Quarter: 2024Q4

REPORT INFORMATION
  Report Type: Spontaneous
  Country: US (occurrence: US)
  Receive Date: 20241113
  Receipt Date: 20241113
  Transmission Date: 20250115
  Serious: No
  Sender: ROCHE
  Company Number: US-ROCHE-10000128708

PATIENT
  Sex: Female

DRUGS (1)
  1. AVASTIN [Suspect]
     Active Substance: BEVACIZUMAB
     Indication: Presumed ocular histoplasmosis syndrome
     Route: 065

REACTIONS (4)
  - Off label use [Unknown]
  - Urinary tract infection [Unknown]
  - Pulmonary mass [Unknown]
  - Renal impairment [Unknown]
